FAERS Safety Report 5922863-0 (Version None)
Quarter: 2008Q4

REPORT INFORMATION
  Report Type: 
  Country: None (occurrence: None)
  Receive Date: 20081017
  Receipt Date: 20081010
  Transmission Date: 20090506
  Serious: Yes (Other)
  Sender: FDA-Public Use
  Company Number: PHHY2008ZA24425

PATIENT

DRUGS (4)
  1. CO-TAREG [Suspect]
  2. NEURONTIN [Concomitant]
  3. FISH OIL [Concomitant]
  4. VITAMINS [Concomitant]

REACTIONS (8)
  - FACIAL NERVE DISORDER [None]
  - GINGIVAL DISORDER [None]
  - MUSCLE SPASMS [None]
  - NEURALGIA [None]
  - ORAL PAIN [None]
  - SURGERY [None]
  - TOOTH DISORDER [None]
  - WEIGHT DECREASED [None]
